FAERS Safety Report 6425275-9 (Version None)
Quarter: 2009Q4

REPORT INFORMATION
  Report Type: 
  Country: None (occurrence: None)
  Receive Date: 20091103
  Receipt Date: 20091027
  Transmission Date: 20100525
  Serious: Yes (Other)
  Sender: FDA-Public Use
  Company Number: US-RB-021176-09

PATIENT
  Age: 50 Year
  Sex: Female

DRUGS (2)
  1. SUBOXONE [Suspect]
     Dosage: UNKNOWN DOSE
     Route: 060
     Dates: start: 20090930, end: 20091001
  2. SUBOXONE [Suspect]
     Route: 060
     Dates: start: 20090101

REACTIONS (11)
  - ACNE [None]
  - AMNESIA [None]
  - DYSARTHRIA [None]
  - ERYTHEMA [None]
  - HALLUCINATION [None]
  - HEADACHE [None]
  - HYPERHIDROSIS [None]
  - NAUSEA [None]
  - NECK PAIN [None]
  - VISION BLURRED [None]
  - WITHDRAWAL SYNDROME [None]
